FAERS Safety Report 7587199 (Version 13)
Quarter: 2014Q1

REPORT INFORMATION
  Report Type: Report from Study
  Country: CA (occurrence: CA)
  Receive Date: 20100915
  Receipt Date: 20140224
  Transmission Date: 20141002
  Serious: Yes (Other)
  Sender: FDA-Public Use
  Company Number: PHHY2010CA60188

PATIENT
  Sex: Male

DRUGS (6)
  1. SANDOSTATIN [Suspect]
     Indication: PITUITARY TUMOUR BENIGN
     Dosage: 50 UG, TID
     Route: 058
     Dates: start: 20100903
  2. SANDOSTATIN LAR [Suspect]
     Indication: PITUITARY TUMOUR BENIGN
     Dosage: 20 MG, QMO
     Route: 030
     Dates: start: 20100912
  3. SANDOSTATIN LAR [Suspect]
     Dosage: 20 MG, QMO
     Route: 030
  4. SANDOSTATIN LAR [Suspect]
     Dosage: 10 MG, EVERY FOUR WEEKS
     Route: 030
  5. SANDOSTATIN LAR [Suspect]
     Dosage: 20 MG, QMO
     Route: 030
  6. SANDOSTATIN LAR [Suspect]
     Dosage: 20 MG EVERY 4 WEEKS
     Route: 030

REACTIONS (4)
  - Feeling abnormal [Unknown]
  - Blood pressure increased [Unknown]
  - Muscle mass [Unknown]
  - Lipodystrophy acquired [Unknown]
